FAERS Safety Report 17396635 (Version 3)
Quarter: 2020Q3

REPORT INFORMATION
  Report Type: Report from Study
  Country: US (occurrence: US)
  Receive Date: 20200210
  Receipt Date: 20200701
  Transmission Date: 20201102
  Serious: Yes (Other)
  Sender: FDA-Public Use
  Company Number: PHHY2019US064829

PATIENT
  Age: 8 Year
  Sex: Male
  Weight: 37.8 kg

DRUGS (6)
  1. KYMRIAH [Suspect]
     Active Substance: TISAGENLECLEUCEL
     Dosage: UNK
     Route: 042
     Dates: start: 20181028
  2. ACYCLOVIR. [Concomitant]
     Active Substance: ACYCLOVIR
     Indication: PRODUCT USED FOR UNKNOWN INDICATION
     Route: 065
  3. VORICONAZOLE. [Concomitant]
     Active Substance: VORICONAZOLE
     Indication: PRODUCT USED FOR UNKNOWN INDICATION
     Route: 065
  4. KYMRIAH [Suspect]
     Active Substance: TISAGENLECLEUCEL
     Indication: ACUTE LYMPHOCYTIC LEUKAEMIA
     Route: 042
  5. PENTAMIDINE [Concomitant]
     Active Substance: PENTAMIDINE
     Indication: PRODUCT USED FOR UNKNOWN INDICATION
     Route: 065
  6. TAMSULOSIN [Concomitant]
     Active Substance: TAMSULOSIN
     Indication: PRODUCT USED FOR UNKNOWN INDICATION
     Route: 065

REACTIONS (6)
  - Upper respiratory tract infection [Recovered/Resolved]
  - Vitamin D deficiency [Not Recovered/Not Resolved]
  - Cough [Recovered/Resolved]
  - Upper respiratory tract congestion [Recovered/Resolved]
  - Catheter site haemorrhage [Recovered/Resolved]
  - B-lymphocyte count abnormal [Unknown]

NARRATIVE: CASE EVENT DATE: 20181024
